FAERS Safety Report 4390868-X (Version None)
Quarter: 2004Q3

REPORT INFORMATION
  Report Type: 
  Country: None (occurrence: None)
  Receive Date: 20040702
  Receipt Date: 20040702
  Transmission Date: 20050211
  Serious: Yes (Hospitalization)
  Sender: FDA-Public Use
  Company Number: None

PATIENT
  Age: 75 Year
  Sex: Male
  Weight: 73.4827 kg

DRUGS (3)
  1. FLUOROURACIL [Suspect]
     Indication: RECTAL CANCER
     Dosage: 423 MG IV
     Route: 042
     Dates: start: 20010417, end: 20010423
  2. IRINOTECAN [Suspect]
     Dosage: 94 MG IV
     Route: 042
     Dates: start: 20010417, end: 20010423
  3. RADATION THERAPY [Concomitant]

REACTIONS (7)
  - COLITIS [None]
  - FATIGUE [None]
  - FEBRILE NEUTROPENIA [None]
  - GASTROENTERITIS RADIATION [None]
  - HAEMOGLOBIN DECREASED [None]
  - RECTAL HAEMORRHAGE [None]
  - WHITE BLOOD CELL COUNT DECREASED [None]
